FAERS Safety Report 20359149 (Version 2)
Quarter: 2022Q1

REPORT INFORMATION
  Report Type: Spontaneous
  Country: US (occurrence: US)
  Receive Date: 20220120
  Receipt Date: 20220304
  Transmission Date: 20220423
  Serious: Yes (Hospitalization)
  Sender: FDA-Public Use
  Company Number: US-BIOVITRUM-2022US00230

PATIENT
  Sex: Male

DRUGS (20)
  1. SYNAGIS [Suspect]
     Active Substance: PALIVIZUMAB
     Indication: Low birth weight baby
     Dosage: 15.0MG/KG UNKNOWN
     Route: 030
  2. SYNAGIS [Suspect]
     Active Substance: PALIVIZUMAB
     Indication: Heart disease congenital
     Dosage: 15.0MG/KG UNKNOWN
     Route: 030
  3. SYNAGIS [Suspect]
     Active Substance: PALIVIZUMAB
     Indication: Patent ductus arteriosus
     Dosage: 15.0MG/KG UNKNOWN
     Route: 030
  4. SYNAGIS [Suspect]
     Active Substance: PALIVIZUMAB
     Indication: Double outlet right ventricle
     Dosage: 15.0MG/KG UNKNOWN
     Route: 030
  5. SYNAGIS [Suspect]
     Active Substance: PALIVIZUMAB
     Indication: Low birth weight baby
     Dosage: UNKNOWN
     Route: 065
  6. SYNAGIS [Suspect]
     Active Substance: PALIVIZUMAB
     Indication: Heart disease congenital
     Dosage: UNKNOWN
     Route: 065
  7. SYNAGIS [Suspect]
     Active Substance: PALIVIZUMAB
     Indication: Patent ductus arteriosus
     Dosage: UNKNOWN
     Route: 065
  8. SYNAGIS [Suspect]
     Active Substance: PALIVIZUMAB
     Indication: Double outlet right ventricle
     Dosage: UNKNOWN
     Route: 065
  9. SYNAGIS [Suspect]
     Active Substance: PALIVIZUMAB
     Indication: Low birth weight baby
     Dosage: UNKNOWN
     Route: 065
  10. SYNAGIS [Suspect]
     Active Substance: PALIVIZUMAB
     Indication: Heart disease congenital
     Dosage: UNKNOWN
     Route: 065
  11. SYNAGIS [Suspect]
     Active Substance: PALIVIZUMAB
     Indication: Patent ductus arteriosus
     Dosage: UNKNOWN
     Route: 065
  12. SYNAGIS [Suspect]
     Active Substance: PALIVIZUMAB
     Indication: Double outlet right ventricle
     Dosage: UNKNOWN
     Route: 065
  13. SYNAGIS [Suspect]
     Active Substance: PALIVIZUMAB
     Indication: Low birth weight baby
     Dosage: UNKNOWN
     Route: 065
  14. SYNAGIS [Suspect]
     Active Substance: PALIVIZUMAB
     Indication: Heart disease congenital
     Dosage: UNKNOWN
     Route: 065
  15. SYNAGIS [Suspect]
     Active Substance: PALIVIZUMAB
     Indication: Patent ductus arteriosus
     Dosage: UNKNOWN
     Route: 065
  16. SYNAGIS [Suspect]
     Active Substance: PALIVIZUMAB
     Indication: Double outlet right ventricle
     Dosage: UNKNOWN
     Route: 065
  17. SILDENAFIL CITRATE [Concomitant]
     Active Substance: SILDENAFIL CITRATE
     Indication: Product used for unknown indication
  18. ENALAPRIL MALEATE [Concomitant]
     Active Substance: ENALAPRIL MALEATE
     Indication: Product used for unknown indication
  19. ASPIRIN [Concomitant]
     Active Substance: ASPIRIN
     Indication: Product used for unknown indication
     Route: 048
  20. EPINEPHRINE [Concomitant]
     Active Substance: EPINEPHRINE
     Indication: Product used for unknown indication

REACTIONS (1)
  - Cardiac disorder [Recovered/Resolved]
